FAERS Safety Report 9540461 (Version 1)
Quarter: 2013Q3

REPORT INFORMATION
  Report Type: Spontaneous
  Country: BR (occurrence: BR)
  Receive Date: 20130920
  Receipt Date: 20130920
  Transmission Date: 20140515
  Serious: Yes (Hospitalization)
  Sender: FDA-Public Use
  Company Number: BR-ELI_LILLY_AND_COMPANY-BR201309004924

PATIENT
  Age: 11 Year
  Sex: Male

DRUGS (1)
  1. HUMULIN N [Suspect]
     Dosage: UNK, UNKNOWN
     Route: 065

REACTIONS (5)
  - Hyperglycaemia [Not Recovered/Not Resolved]
  - Urinary tract infection [Unknown]
  - Gastritis [Unknown]
  - Gastrointestinal injury [Unknown]
  - Depression [Unknown]
